FAERS Safety Report 19443390 (Version 2)
Quarter: 2021Q3

REPORT INFORMATION
  Report Type: Spontaneous
  Country: US (occurrence: US)
  Receive Date: 20210621
  Receipt Date: 20210707
  Transmission Date: 20211014
  Serious: Yes (Other)
  Sender: FDA-Public Use
  Company Number: US-PFIZER INC-03H-163-0218597-00

PATIENT
  Age: 3 Week
  Sex: Female
  Weight: .6 kg

DRUGS (1)
  1. MORPHINE SULFATE. [Suspect]
     Active Substance: MORPHINE SULFATE
     Indication: ANALGESIC THERAPY
     Dosage: 30 UG/KG?1H ?1
     Route: 042

REACTIONS (6)
  - Pyelocaliectasis [Recovered/Resolved]
  - Bladder dilatation [Recovering/Resolving]
  - Urinary retention [Recovered/Resolved]
  - Oliguria [Unknown]
  - Hydronephrosis [Recovered/Resolved]
  - Blood creatinine increased [Recovered/Resolved]

NARRATIVE: CASE EVENT DATE: 20030101
